FAERS Safety Report 9851881 (Version 1)
Quarter: 2013Q4

REPORT INFORMATION
  Report Type: Spontaneous
  Country: US (occurrence: None)
  Receive Date: 20131127
  Receipt Date: 20131127
  Transmission Date: 20140711
  Serious: No
  Sender: FDA-Public Use
  Company Number: 223384LEO

PATIENT
  Age: 67 Year
  Sex: Female

DRUGS (1)
  1. PICATO (0.015 %, GEL) [Suspect]
     Indication: PRODUCT USED FOR UNKNOWN INDICATION
     Dosage: NOSE AND FACE
     Dates: start: 20130831

REACTIONS (7)
  - Swelling face [None]
  - Application site swelling [None]
  - Application site pain [None]
  - Application site pain [None]
  - Application site erythema [None]
  - Incorrect drug administration duration [None]
  - Drug administered at inappropriate site [None]
